FAERS Safety Report 18058373 (Version 6)
Quarter: 2021Q1

REPORT INFORMATION
  Report Type: Spontaneous
  Country: US (occurrence: US)
  Receive Date: 20200723
  Receipt Date: 20210309
  Transmission Date: 20210419
  Serious: Yes (Hospitalization, Other)
  Sender: FDA-Public Use
  Company Number: US-PIRAMAL ENTERPRISES LIMITED-2020-PEL-000357

PATIENT

DRUGS (3)
  1. GABLOFEN [Suspect]
     Active Substance: BACLOFEN
     Indication: PRODUCT USED FOR UNKNOWN INDICATION
     Dosage: 946 MICROGRAM, PER DAY
     Route: 037
  2. GABLOFEN [Suspect]
     Active Substance: BACLOFEN
     Dosage: 96.080 MICROGRAM PER DAY
     Route: 037
  3. GABLOFEN [Suspect]
     Active Substance: BACLOFEN
     Dosage: 107.936 MICROGRAM PER DAY
     Route: 037

REACTIONS (17)
  - Implant site erythema [Unknown]
  - Implant site discharge [Unknown]
  - Wound [Unknown]
  - Body temperature increased [Unknown]
  - Cerebrospinal fluid leakage [Unknown]
  - Device breakage [Unknown]
  - Acute respiratory distress syndrome [Unknown]
  - Implant site infection [Unknown]
  - Sepsis [Recovered/Resolved]
  - Implant site swelling [Unknown]
  - Implant site pain [Unknown]
  - Purulent discharge [Unknown]
  - Fatigue [Unknown]
  - Vomiting [Unknown]
  - Device leakage [Unknown]
  - Discomfort [Unknown]
  - Scab [Recovered/Resolved]

NARRATIVE: CASE EVENT DATE: 20200513
